FAERS Safety Report 20477996 (Version 1)
Quarter: 2022Q1

REPORT INFORMATION
  Report Type: Spontaneous
  Country: PT (occurrence: PT)
  Receive Date: 20220216
  Receipt Date: 20220216
  Transmission Date: 20220423
  Serious: Yes (Life-Threatening, Hospitalization, Other)
  Sender: FDA-Public Use
  Company Number: PT-PFIZER INC-202200148932

PATIENT
  Age: 65 Year
  Sex: Male

DRUGS (4)
  1. LINEZOLID [Interacting]
     Active Substance: LINEZOLID
     Indication: Bacteraemia
     Dosage: UNK
     Route: 065
  2. LINEZOLID [Interacting]
     Active Substance: LINEZOLID
     Indication: Extradural abscess
  3. TAPENTADOL [Interacting]
     Active Substance: TAPENTADOL
     Indication: Product used for unknown indication
     Dosage: UNK
     Route: 065
  4. TAPENTADOL [Interacting]
     Active Substance: TAPENTADOL
     Indication: Pain

REACTIONS (4)
  - Delirium [Unknown]
  - Herpes simplex encephalitis [Unknown]
  - Drug interaction [Unknown]
  - Off label use [Unknown]
